FAERS Safety Report 8428163-1 (Version None)
Quarter: 2012Q2

REPORT INFORMATION
  Report Type: 
  Country: None (occurrence: None)
  Receive Date: 20120611
  Receipt Date: 20120606
  Transmission Date: 20120825
  Serious: Yes (Hospitalization, Other)
  Sender: FDA-Public Use
  Company Number: JP-PFIZER INC-2012116104

PATIENT
  Age: 72 Year
  Sex: Female
  Weight: 57 kg

DRUGS (13)
  1. LYRICA [Suspect]
     Indication: POST HERPETIC NEURALGIA
     Dosage: 75 MG, 2X/DAY
     Route: 048
     Dates: start: 20100716, end: 20100719
  2. LYRICA [Suspect]
     Dosage: 150 MG, 2X/DAY
     Route: 048
     Dates: start: 20100720, end: 20100726
  3. LYRICA [Suspect]
     Dosage: 300 MG, 2X/DAY
     Route: 048
     Dates: start: 20100803, end: 20100810
  4. AMITRIPTYLINE HCL [Suspect]
     Indication: POST HERPETIC NEURALGIA
     Dosage: 25 MG, 4X/DAY
     Route: 048
     Dates: start: 20100517, end: 20100531
  5. FAMOTIDINE [Concomitant]
     Indication: GASTRIC ULCER
     Dosage: 10 MG, 1X/DAY
     Route: 017
     Dates: start: 20100810, end: 20100811
  6. AMITRIPTYLINE HCL [Suspect]
     Dosage: 25 MG, 4X/DAY
     Route: 048
     Dates: start: 20100719, end: 20100727
  7. AMITRIPTYLINE HCL [Suspect]
     Dosage: 25 MG, 2X/DAY
     Route: 048
     Dates: start: 20100727, end: 20100803
  8. AMPICILLIN SODIUM/SULBACTAM SODIUM [Suspect]
     Indication: BRONCHIOLITIS
     Dosage: 1 DF, 2X/DAY
     Route: 042
     Dates: start: 20100810, end: 20100811
  9. LYRICA [Suspect]
     Dosage: 225 MG, 2X/DAY
     Route: 048
     Dates: start: 20100727, end: 20100802
  10. AMITRIPTYLINE HCL [Suspect]
     Dosage: 10 MG, 1X/DAY
     Route: 048
     Dates: start: 20100803, end: 20100810
  11. AMITRIPTYLINE HCL [Suspect]
     Dosage: 50 MG, 4X/DAY
     Route: 048
     Dates: start: 20100531, end: 20100719
  12. METHYLPREDNISOLONE SODIUM SUCCINATE [Suspect]
     Indication: INTERSTITIAL LUNG DISEASE
     Dosage: 250 MG, 1X/DAY
     Route: 042
     Dates: start: 20100810, end: 20100811
  13. MINOCYCLINE [Suspect]
     Indication: BRONCHIOLITIS
     Dosage: 1 DF, 2X/DAY
     Route: 042
     Dates: start: 20100810, end: 20100811

REACTIONS (5)
  - DELIRIUM [None]
  - RESTLESSNESS [None]
  - PERSECUTORY DELUSION [None]
  - ABNORMAL BEHAVIOUR [None]
  - PNEUMONIA [None]
